FAERS Safety Report 4413864-2 (Version None)
Quarter: 2004Q3

REPORT INFORMATION
  Report Type: 
  Country: None (occurrence: None)
  Receive Date: 20040728
  Receipt Date: 20040712
  Transmission Date: 20050211
  Serious: Yes (Life-Threatening, Other)
  Sender: FDA-Public Use
  Company Number: JP_040603582

PATIENT
  Age: 74 Year
  Sex: Female
  Weight: 40 kg

DRUGS (5)
  1. EVISTA [Suspect]
     Indication: OSTEOPOROSIS
     Dosage: 60 MG/1 DAY
     Dates: start: 20040522, end: 20040619
  2. GLAKAY   (MENATETRENONE) [Concomitant]
  3. ALFACALCIDOL [Concomitant]
  4. ASPARTATE CALCIUM [Concomitant]
  5. PRAVASTATIN SODIUM [Concomitant]

REACTIONS (4)
  - GASTRIC ULCER HAEMORRHAGE [None]
  - IRON DEFICIENCY ANAEMIA [None]
  - NORMOCHROMIC NORMOCYTIC ANAEMIA [None]
  - PLATELET COUNT INCREASED [None]
